FAERS Safety Report 20409817 (Version 2)
Quarter: 2022Q1

REPORT INFORMATION
  Report Type: Spontaneous
  Country: FR (occurrence: FR)
  Receive Date: 20220201
  Receipt Date: 20220209
  Transmission Date: 20220423
  Serious: Yes (Life-Threatening, Hospitalization, Other)
  Sender: FDA-Public Use
  Company Number: FR-MLMSERVICE-20220118-3316322-1

PATIENT
  Age: 60 Year
  Sex: Male
  Weight: 64 kg

DRUGS (2)
  1. METHOTREXATE [Suspect]
     Active Substance: METHOTREXATE
     Indication: Immunosuppressant drug therapy
     Dosage: SHORT COURSE
     Dates: start: 201006, end: 2010
  2. CYCLOSPORINE [Suspect]
     Active Substance: CYCLOSPORINE
     Indication: Immunosuppressant drug therapy
     Dates: start: 201006, end: 2010

REACTIONS (5)
  - Pulmonary nocardiosis [Recovered/Resolved]
  - Cerebral nocardiosis [Recovered/Resolved]
  - Thyroid gland abscess [Recovered/Resolved]
  - Nocardiosis [Recovered/Resolved]
  - Eye abscess [Recovered/Resolved]

NARRATIVE: CASE EVENT DATE: 20100101
